FAERS Safety Report 8959973 (Version 2)
Quarter: 2013Q3

REPORT INFORMATION
  Report Type: Spontaneous
  Country: US (occurrence: US)
  Receive Date: 20121211
  Receipt Date: 20130823
  Transmission Date: 20140515
  Serious: Yes (Other)
  Sender: FDA-Public Use
  Company Number: CHPA2012US024640

PATIENT
  Age: 58 Year
  Sex: Female

DRUGS (2)
  1. EXCEDRIN EXTRA STRENGTH [Suspect]
     Indication: HEADACHE
     Dosage: 0.5 DF, PRN
     Route: 048
     Dates: start: 1976
  2. MECLIZINE [Suspect]
     Indication: VERTIGO
     Dosage: 0.5 DF, PRN
     Route: 048
     Dates: start: 2012

REACTIONS (9)
  - Breast cancer [Recovered/Resolved]
  - Meniere^s disease [Not Recovered/Not Resolved]
  - Vertigo [Not Recovered/Not Resolved]
  - Vomiting [Not Recovered/Not Resolved]
  - Frequent bowel movements [Not Recovered/Not Resolved]
  - Meniscus injury [Unknown]
  - Arthritis [Unknown]
  - Sedation [Unknown]
  - Underdose [Unknown]
